FAERS Safety Report 6171147-7 (Version None)
Quarter: 2009Q2

REPORT INFORMATION
  Report Type: 
  Country: None (occurrence: None)
  Receive Date: 20090427
  Receipt Date: 20090415
  Transmission Date: 20091009
  Serious: Yes (Hospitalization)
  Sender: FDA-Public Use
  Company Number: 1000005900

PATIENT
  Age: 87 Year
  Sex: Female

DRUGS (13)
  1. CITALOPRAM HYDROBROMIDE [Suspect]
     Dosage: 20 MG (20 MG, 1 IN 1 D), ORAL
     Route: 048
  2. NEURONTIN [Suspect]
     Dosage: 1100 MG (1100 MG, 1 IN 1 D), ORAL
     Route: 048
  3. NEURONTIN [Suspect]
     Route: 048
  4. INIPOMP [Suspect]
     Dosage: 1 DOSAGE FORMS (1 DOSAGE FORMS, 1 IN 1 D), ORAL
     Route: 048
     Dates: end: 20090316
  5. ADARTEL [Suspect]
     Dosage: 1.25 MG (1.25 MG, 1 IN 1 D), ORAL
     Route: 048
     Dates: end: 20090316
  6. ADANCOR [Suspect]
     Dosage: 40 MG (40 MG, 1 IN 1 D)
  7. ADANCOR [Suspect]
  8. SERETIDE [Concomitant]
  9. SPIRIVA [Concomitant]
  10. FOSAMAX [Concomitant]
  11. TOCOLPHA CAP [Concomitant]
  12. KARDEGIC [Concomitant]
  13. FORLAX [Concomitant]

REACTIONS (3)
  - DRUG INTERACTION [None]
  - FALL [None]
  - VERTIGO [None]
